FAERS Safety Report 22314708 (Version 2)
Quarter: 2023Q2

REPORT INFORMATION
  Report Type: Spontaneous
  Country: GB (occurrence: GB)
  Receive Date: 20230512
  Receipt Date: 20230601
  Transmission Date: 20230721
  Serious: Yes (Hospitalization, Other)
  Sender: FDA-Public Use
  Company Number: GB-TEVA-2023-GB-2885304

PATIENT
  Sex: Male

DRUGS (1)
  1. WARFARIN [Suspect]
     Active Substance: WARFARIN
     Indication: Anticoagulant therapy
     Route: 065
     Dates: start: 202101

REACTIONS (13)
  - Eye haemorrhage [Unknown]
  - Internal haemorrhage [Unknown]
  - Epistaxis [Recovered/Resolved]
  - Gastric ulcer [Unknown]
  - Necrosis [Recovered/Resolved]
  - Pain in extremity [Unknown]
  - Skin discolouration [Unknown]
  - Heel fat pad syndrome [Not Recovered/Not Resolved]
  - Haemoglobin decreased [Unknown]
  - Contusion [Unknown]
  - Plantar fasciitis [Unknown]
  - Scab [Recovered/Resolved]
  - Asthenia [Unknown]

NARRATIVE: CASE EVENT DATE: 20211101
